FAERS Safety Report 23623396 (Version 1)
Quarter: 2024Q1

REPORT INFORMATION
  Report Type: Spontaneous
  Country: FR (occurrence: FR)
  Receive Date: 20240312
  Receipt Date: 20240312
  Transmission Date: 20240409
  Serious: Yes (Other)
  Sender: FDA-Public Use
  Company Number: None

PATIENT
  Age: 9 Year
  Sex: Female

DRUGS (2)
  1. TEGRETOL [Suspect]
     Active Substance: CARBAMAZEPINE
     Indication: Cystitis
     Dosage: 600 MG
     Route: 048
     Dates: start: 20230401
  2. CEFIXIME [Suspect]
     Active Substance: CEFIXIME
     Indication: Cystitis
     Dosage: UNK
     Route: 048
     Dates: start: 20231020, end: 20231025

REACTIONS (1)
  - Epilepsy [Not Recovered/Not Resolved]

NARRATIVE: CASE EVENT DATE: 20231025
